FAERS Safety Report 7992887-0 (Version None)
Quarter: 2011Q4

REPORT INFORMATION
  Report Type: 
  Country: None (occurrence: None)
  Receive Date: 20111219
  Receipt Date: 20110110
  Transmission Date: 20120403
  Serious: No
  Sender: FDA-Public Use
  Company Number: US-ASTRAZENECA-2011SE01766

PATIENT
  Age: 56 Year
  Sex: Male

DRUGS (3)
  1. PROSCAR [Concomitant]
  2. CRESTOR [Suspect]
     Route: 048
  3. GROWTH HORMONE [Concomitant]

REACTIONS (1)
  - INSULIN-LIKE GROWTH FACTOR DECREASED [None]
